FAERS Safety Report 22149776 (Version 2)
Quarter: 2023Q2

REPORT INFORMATION
  Report Type: Report from Study
  Country: JP (occurrence: JP)
  Receive Date: 20230329
  Receipt Date: 20230404
  Transmission Date: 20230721
  Serious: Yes (Hospitalization)
  Sender: FDA-Public Use
  Company Number: JP-JNJFOC-20230365492

PATIENT
  Age: 75 Year
  Sex: Male
  Weight: 69.4 kg

DRUGS (2)
  1. IMBRUVICA [Suspect]
     Active Substance: IBRUTINIB
     Indication: Chronic lymphocytic leukaemia
     Route: 048
     Dates: start: 20191212, end: 20220602
  2. SULFAMETHOXAZOLE\TRIMETHOPRIM [Concomitant]
     Active Substance: SULFAMETHOXAZOLE\TRIMETHOPRIM
     Indication: Prophylaxis
     Dosage: DOSE UNKNOWN
     Route: 065
     Dates: start: 20191221

REACTIONS (1)
  - Atrioventricular block [Recovered/Resolved]

NARRATIVE: CASE EVENT DATE: 20220602
